FAERS Safety Report 16116386 (Version 2)
Quarter: 2019Q2

REPORT INFORMATION
  Report Type: Spontaneous
  Country: ES (occurrence: ES)
  Receive Date: 20190326
  Receipt Date: 20190405
  Transmission Date: 20190711
  Serious: Yes (Death, Other)
  Sender: FDA-Public Use
  Company Number: ES-AUROBINDO-AUR-APL-2018-031382

PATIENT

DRUGS (3)
  1. CAPECITABINE FILM COATED TABLET [Suspect]
     Active Substance: CAPECITABINE
     Indication: PRODUCT USED FOR UNKNOWN INDICATION
     Dosage: 1250 MILLIGRAM/SQ. METER, TWO TIMES A DAY
     Route: 065
     Dates: start: 20180313, end: 20180514
  2. ERIBULIN [Concomitant]
     Active Substance: ERIBULIN
     Indication: PRODUCT USED FOR UNKNOWN INDICATION
     Dosage: 1.23 MILLIGRAM/SQ. METER, UNK
     Route: 042
     Dates: start: 20180515, end: 20180720
  3. METHOTREXATE. [Concomitant]
     Active Substance: METHOTREXATE
     Indication: PRODUCT USED FOR UNKNOWN INDICATION
     Dosage: 40 MILLIGRAM/SQ. METER, UNK
     Route: 042
     Dates: start: 20180727, end: 20180823

REACTIONS (3)
  - Death [Fatal]
  - Drug ineffective [Unknown]
  - Disease progression [Fatal]

NARRATIVE: CASE EVENT DATE: 201808
